FAERS Safety Report 17015506 (Version 1)
Quarter: 2019Q4

REPORT INFORMATION
  Report Type: Spontaneous
  Country: US (occurrence: US)
  Receive Date: 20191002
  Receipt Date: 20191002
  Transmission Date: 20200122
  Serious: Yes (Hospitalization)
  Sender: FDA-Public Use
  Company Number: None

PATIENT
  Age: 53 Year
  Sex: Male
  Weight: 93.5 kg

DRUGS (10)
  1. IBUPROFEN. [Concomitant]
     Active Substance: IBUPROFEN
  2. MORPHINE [Concomitant]
     Active Substance: MORPHINE
  3. ABIRATERONE ACETATE. [Suspect]
     Active Substance: ABIRATERONE ACETATE
     Dates: end: 20190910
  4. CABAZITAXEL [Suspect]
     Active Substance: CABAZITAXEL
     Dates: end: 20190910
  5. CALCIUM CARBONATE. [Concomitant]
     Active Substance: CALCIUM CARBONATE
  6. DEXAMETHASONE. [Concomitant]
     Active Substance: DEXAMETHASONE
  7. TAMSULOSIN [Concomitant]
     Active Substance: TAMSULOSIN
  8. ONDANSETRON [Concomitant]
     Active Substance: ONDANSETRON
  9. PEPCID [Concomitant]
     Active Substance: FAMOTIDINE
  10. GABAPENTIN. [Concomitant]
     Active Substance: GABAPENTIN

REACTIONS (4)
  - Headache [None]
  - Decreased appetite [None]
  - Muscular weakness [None]
  - Chills [None]

NARRATIVE: CASE EVENT DATE: 20190915
